FAERS Safety Report 7121920-3 (Version None)
Quarter: 2010Q4

REPORT INFORMATION
  Report Type: 
  Country: None (occurrence: None)
  Receive Date: 20101124
  Receipt Date: 20101122
  Transmission Date: 20110411
  Serious: Yes (Life-Threatening, Hospitalization, Disabling)
  Sender: FDA-Public Use
  Company Number: DE-SANOFI-AVENTIS-2010SA047977

PATIENT
  Age: 69 Year
  Sex: Male
  Weight: 83 kg

DRUGS (7)
  1. MULTAQ [Suspect]
     Indication: ATRIAL FIBRILLATION
     Route: 048
     Dates: start: 20100419, end: 20100809
  2. MULTAQ [Suspect]
     Indication: AORTIC VALVE REPLACEMENT
     Route: 048
     Dates: start: 20100419, end: 20100809
  3. ATORVASTATIN [Concomitant]
     Indication: AORTIC VALVE REPLACEMENT
     Dosage: DOSAGE: 1/2 TABLET DAILY
     Route: 048
     Dates: start: 20080101, end: 20100801
  4. ACETYLSALICYLIC ACID [Concomitant]
     Indication: AORTIC VALVE REPLACEMENT
     Route: 048
     Dates: start: 20100501
  5. METOPROLOL SUCCINATE [Concomitant]
     Indication: AORTIC VALVE REPLACEMENT
     Route: 048
     Dates: start: 20080101
  6. DIOVAN HCT [Concomitant]
     Indication: AORTIC VALVE REPLACEMENT
     Route: 048
     Dates: start: 20080101, end: 20100801
  7. MARCUMAR [Concomitant]
     Route: 065
     Dates: start: 20100201, end: 20100523

REACTIONS (5)
  - ERYTHEMA [None]
  - HEPATIC FAILURE [None]
  - INDIFFERENCE [None]
  - MYALGIA [None]
  - TRANSAMINASES INCREASED [None]
